FAERS Safety Report 6604804-6 (Version None)
Quarter: 2010Q1

REPORT INFORMATION
  Report Type: 
  Country: None (occurrence: None)
  Receive Date: 20100226
  Receipt Date: 20100223
  Transmission Date: 20100710
  Serious: Yes (Other)
  Sender: FDA-Public Use
  Company Number: FI-ROCHE-687243

PATIENT
  Age: 51 Year
  Sex: Female

DRUGS (3)
  1. AVASTIN [Suspect]
     Indication: BREAST CANCER
     Route: 042
     Dates: start: 20071107, end: 20090402
  2. TAXOL [Concomitant]
     Indication: BREAST CANCER
  3. GEMZAR [Concomitant]
     Indication: BREAST CANCER
     Dates: end: 20090402

REACTIONS (1)
  - TYPE 2 DIABETES MELLITUS [None]
